FAERS Safety Report 18528131 (Version 1)
Quarter: 2020Q4

REPORT INFORMATION
  Report Type: Spontaneous
  Country: US (occurrence: MX)
  Receive Date: 20201120
  Receipt Date: 20201120
  Transmission Date: 20210114
  Serious: Yes (Disabling, Other)
  Sender: FDA-Public Use
  Company Number: MX-BIOMARINAP-MX-2020-133412

PATIENT
  Age: 17 Year
  Sex: Female

DRUGS (1)
  1. ALDURAZYME [Suspect]
     Active Substance: LARONIDASE
     Indication: MUCOPOLYSACCHARIDOSIS I
     Dosage: UNK
     Route: 042
     Dates: start: 2004, end: 2018

REACTIONS (8)
  - Hypoacusis [Unknown]
  - Anxiety [Not Recovered/Not Resolved]
  - Deafness unilateral [Unknown]
  - Spinal compression fracture [Unknown]
  - Musculoskeletal stiffness [Unknown]
  - Walking disability [Unknown]
  - Corneal opacity [Unknown]
  - Umbilical hernia repair [Unknown]

NARRATIVE: CASE EVENT DATE: 2018
